FAERS Safety Report 26209744 (Version 1)
Quarter: 2025Q4

REPORT INFORMATION
  Report Type: Spontaneous
  Country: CN (occurrence: CN)
  Receive Date: 20251229
  Receipt Date: 20251229
  Transmission Date: 20260118
  Serious: Yes (Other)
  Sender: NOVO NORDISK
  Company Number: CN-NOVOPROD-1589204

PATIENT
  Age: 83 Year
  Sex: Male

DRUGS (1)
  1. INSULIN ASPART [Suspect]
     Active Substance: INSULIN ASPART
     Indication: Diabetes mellitus
     Dosage: 18 UNITS IN THE MORNING AND 10 UNITS IN THE EVENING

REACTIONS (2)
  - Blindness [Unknown]
  - Hypoacusis [Unknown]
